FAERS Safety Report 13657121 (Version 1)
Quarter: 2017Q2

REPORT INFORMATION
  Report Type: Spontaneous
  Country: FR (occurrence: FR)
  Receive Date: 20170615
  Receipt Date: 20170615
  Transmission Date: 20170830
  Serious: Yes (Other)
  Sender: FDA-Public Use
  Company Number: FR-BAYER-2017-110759

PATIENT
  Age: 33 Year
  Sex: Female

DRUGS (1)
  1. MIRENA [Suspect]
     Active Substance: LEVONORGESTREL
     Indication: CHEMICAL CONTRACEPTION
     Dosage: 20 MCG/24HR, CONT
     Route: 015
     Dates: start: 20121201, end: 20170519

REACTIONS (13)
  - Dyspepsia [Unknown]
  - Alopecia [Unknown]
  - Vertigo [Unknown]
  - Migraine [Unknown]
  - Abdominal pain [Unknown]
  - Loss of libido [Unknown]
  - Depression [Unknown]
  - Neck pain [Unknown]
  - Vulvovaginal mycotic infection [Unknown]
  - Ovarian cyst [Unknown]
  - Back pain [Unknown]
  - Pain in extremity [Unknown]
  - Acne [Unknown]

NARRATIVE: CASE EVENT DATE: 201212
